FAERS Safety Report 21405729 (Version 4)
Quarter: 2023Q2

REPORT INFORMATION
  Report Type: Report from Study
  Country: US (occurrence: US)
  Receive Date: 20221004
  Receipt Date: 20230403
  Transmission Date: 20230721
  Serious: Yes (Hospitalization, Other)
  Sender: FDA-Public Use
  Company Number: US-ABBVIE-4134661

PATIENT
  Sex: Male

DRUGS (5)
  1. IMBRUVICA [Suspect]
     Active Substance: IBRUTINIB
     Indication: Waldenstrom^s macroglobulinaemia
     Dosage: 3 CAPSULES?FORM STRENGTH: 420MG
     Route: 048
     Dates: start: 2011
  2. IMBRUVICA [Suspect]
     Active Substance: IBRUTINIB
     Indication: Waldenstrom^s macroglobulinaemia
     Dosage: 3 CAPSULES?FORM STRENGTH: 420MG
     Route: 048
     Dates: start: 2023
  3. PROCRIT [Concomitant]
     Active Substance: ERYTHROPOIETIN
     Indication: Product used for unknown indication
     Dosage: FOUR SESSIONS
  4. BRUKINSA [Suspect]
     Active Substance: ZANUBRUTINIB
     Indication: Product used for unknown indication
     Route: 065
     Dates: start: 2022, end: 2022
  5. IRON [Concomitant]
     Active Substance: IRON
     Indication: Product used for unknown indication

REACTIONS (19)
  - Haematochezia [Unknown]
  - Full blood count decreased [Unknown]
  - Eye disorder [Unknown]
  - Blood albumin decreased [Unknown]
  - Full blood count abnormal [Unknown]
  - Nasopharyngitis [Not Recovered/Not Resolved]
  - Unevaluable event [Unknown]
  - Haematotoxicity [Unknown]
  - Full blood count abnormal [Unknown]
  - Upper gastrointestinal haemorrhage [Not Recovered/Not Resolved]
  - Eye injury [Unknown]
  - Pain in extremity [Not Recovered/Not Resolved]
  - Vascular rupture [Unknown]
  - Epistaxis [Unknown]
  - Arthritis [Unknown]
  - Transfusion [Unknown]
  - Full blood count decreased [Unknown]
  - Blood immunoglobulin M decreased [Unknown]
  - Hospitalisation [Recovered/Resolved]

NARRATIVE: CASE EVENT DATE: 20220101
